FAERS Safety Report 14604873 (Version 2)
Quarter: 2018Q1

REPORT INFORMATION
  Report Type: Spontaneous
  Country: DE (occurrence: DE)
  Receive Date: 20180306
  Receipt Date: 20180320
  Transmission Date: 20180509
  Serious: Yes (Death, Life-Threatening, Hospitalization, Other)
  Sender: FDA-Public Use
  Company Number: DE-SA-2017SA084686

PATIENT
  Age: 75 Year
  Sex: Male
  Weight: 82 kg

DRUGS (23)
  1. MIRTAZAPINE. [Suspect]
     Active Substance: MIRTAZAPINE
     Indication: PROGRESSIVE MULTIFOCAL LEUKOENCEPHALOPATHY
     Route: 048
     Dates: start: 2015
  2. RITUXIMAB. [Suspect]
     Active Substance: RITUXIMAB
     Indication: CHRONIC LYMPHOCYTIC LEUKAEMIA
     Route: 065
     Dates: start: 201202, end: 201204
  3. MIRTAZAPINE. [Suspect]
     Active Substance: MIRTAZAPINE
     Indication: CHRONIC LYMPHOCYTIC LEUKAEMIA
     Route: 048
     Dates: start: 2015
  4. BENDAMUSTINE HYDROCHLORIDE. [Suspect]
     Active Substance: BENDAMUSTINE HYDROCHLORIDE
     Indication: B-CELL LYMPHOMA
     Dosage: POWDER (EXCEPT DUSTING POWDER)
     Route: 042
     Dates: start: 201202, end: 201204
  5. PREDNISOLONE. [Suspect]
     Active Substance: PREDNISOLONE
     Indication: B-CELL LYMPHOMA
     Dosage: 6 CYCLES
     Route: 065
     Dates: start: 201302, end: 201306
  6. CYCLOPHOSPHAMIDE. [Suspect]
     Active Substance: CYCLOPHOSPHAMIDE
     Indication: CHRONIC LYMPHOCYTIC LEUKAEMIA
     Route: 065
     Dates: start: 200812, end: 200904
  7. FLUDARABINE PHOSPHATE. [Suspect]
     Active Substance: FLUDARABINE PHOSPHATE
     Indication: B-CELL LYMPHOMA
     Dosage: 3 CYCLES
     Route: 065
     Dates: start: 201312, end: 201402
  8. MEFLOQUINE [Suspect]
     Active Substance: MEFLOQUINE
     Indication: PROGRESSIVE MULTIFOCAL LEUKOENCEPHALOPATHY
     Dosage: FOR THREE DAYS
     Route: 048
     Dates: start: 201501, end: 201501
  9. EPIRUBICIN [Suspect]
     Active Substance: EPIRUBICIN
     Indication: B-CELL LYMPHOMA
     Dosage: 6 CYCLES
     Route: 065
     Dates: start: 201302, end: 201306
  10. RITUXIMAB. [Suspect]
     Active Substance: RITUXIMAB
     Indication: IMMUNOCHEMOTHERAPY
     Route: 065
     Dates: start: 201202, end: 201204
  11. PREDNISOLONE. [Suspect]
     Active Substance: PREDNISOLONE
     Indication: IMMUNOCHEMOTHERAPY
     Dosage: 6 CYCLES
     Route: 065
     Dates: start: 201302, end: 201306
  12. CHLORAMBUCIL [Concomitant]
     Active Substance: CHLORAMBUCIL
     Indication: B-CELL LYMPHOMA
     Route: 065
     Dates: start: 201503
  13. FLUDARABINE PHOSPHATE. [Suspect]
     Active Substance: FLUDARABINE PHOSPHATE
     Indication: CHRONIC LYMPHOCYTIC LEUKAEMIA
     Route: 065
     Dates: start: 200812, end: 200904
  14. MEFLOQUINE [Suspect]
     Active Substance: MEFLOQUINE
     Indication: CHRONIC LYMPHOCYTIC LEUKAEMIA
     Dosage: FOR THREE DAYS
     Route: 048
     Dates: start: 201501, end: 201501
  15. MEFLOQUINE [Suspect]
     Active Substance: MEFLOQUINE
     Indication: CHRONIC LYMPHOCYTIC LEUKAEMIA
     Dosage: FOR THREE DAYS
     Route: 048
     Dates: start: 2015
  16. EPIRUBICIN [Suspect]
     Active Substance: EPIRUBICIN
     Indication: CHRONIC LYMPHOCYTIC LEUKAEMIA
     Dosage: 6 CYCLES
     Route: 065
     Dates: start: 201302, end: 201306
  17. MEFLOQUINE [Suspect]
     Active Substance: MEFLOQUINE
     Indication: PROGRESSIVE MULTIFOCAL LEUKOENCEPHALOPATHY
     Dosage: FOR THREE DAYS
     Route: 048
     Dates: start: 2015
  18. RITUXIMAB. [Suspect]
     Active Substance: RITUXIMAB
     Indication: B-CELL LYMPHOMA
     Route: 065
     Dates: start: 201202, end: 201204
  19. FLUDARABINE PHOSPHATE. [Suspect]
     Active Substance: FLUDARABINE PHOSPHATE
     Indication: B-CELL LYMPHOMA
     Route: 065
     Dates: start: 200812, end: 200904
  20. IBRUTINIB [Suspect]
     Active Substance: IBRUTINIB
     Indication: B-CELL LYMPHOMA
     Route: 065
     Dates: start: 20150304
  21. BENDAMUSTINE HYDROCHLORIDE. [Suspect]
     Active Substance: BENDAMUSTINE HYDROCHLORIDE
     Indication: CHRONIC LYMPHOCYTIC LEUKAEMIA
     Dosage: POWDER (EXCEPT DUSTING POWDER)
     Route: 042
     Dates: start: 201202, end: 201204
  22. CYCLOPHOSPHAMIDE. [Suspect]
     Active Substance: CYCLOPHOSPHAMIDE
     Indication: CHRONIC LYMPHOCYTIC LEUKAEMIA
     Dosage: 3 CYCLES
     Route: 065
     Dates: start: 201312, end: 201402
  23. FLUDARABINE PHOSPHATE. [Suspect]
     Active Substance: FLUDARABINE PHOSPHATE
     Indication: CHRONIC LYMPHOCYTIC LEUKAEMIA
     Dosage: 3 CYCLES
     Route: 065
     Dates: start: 201312, end: 201402

REACTIONS (19)
  - Haemolysis [Fatal]
  - Atrial fibrillation [Unknown]
  - Squamous cell carcinoma [Unknown]
  - Diarrhoea [Recovered/Resolved]
  - Progressive multifocal leukoencephalopathy [Fatal]
  - Pneumonia aspiration [Fatal]
  - Condition aggravated [Fatal]
  - Bone marrow failure [Fatal]
  - Off label use [Fatal]
  - Chronic lymphocytic leukaemia [Fatal]
  - Dysarthria [Fatal]
  - Eyelid ptosis [Fatal]
  - Drug ineffective [Fatal]
  - Demyelinating polyneuropathy [Fatal]
  - Paresis [Fatal]
  - Hyperkeratosis [Unknown]
  - Paraesthesia [Fatal]
  - Hypoaesthesia [Fatal]
  - Atypical pneumonia [Unknown]

NARRATIVE: CASE EVENT DATE: 201204
